FAERS Safety Report 18677887 (Version 3)
Quarter: 2021Q2

REPORT INFORMATION
  Report Type: Spontaneous
  Country: US (occurrence: US)
  Receive Date: 20201229
  Receipt Date: 20210519
  Transmission Date: 20210717
  Serious: Yes (Other)
  Sender: FDA-Public Use
  Company Number: US-PFIZER INC-2020513744

PATIENT
  Age: 59 Year
  Sex: Female

DRUGS (11)
  1. VITAMIN C [CALCIUM ASCORBATE] [Concomitant]
     Active Substance: CALCIUM ASCORBATE
     Dosage: 1000 MG
  2. IBRANCE [Suspect]
     Active Substance: PALBOCICLIB
     Dosage: 125 MG, CYCLIC (DAILY FOR 3 WEEKS ON) (125MG DAILY FOR 21 DAYS)
     Route: 048
     Dates: start: 202011
  3. FASLODEX [Concomitant]
     Active Substance: FULVESTRANT
     Dosage: UNK; (250MG/5 ML SYRINGE)
  4. CALCIUM + VITAMIN D [CALCIUM;COLECALCIFEROL] [Concomitant]
     Active Substance: CALCIUM\CHOLECALCIFEROL
     Dosage: UNK; (500 MG ?1000 TAB)
  5. GABAPENTIN. [Concomitant]
     Active Substance: GABAPENTIN
     Dosage: UNK; (100 % POWDER)
  6. VITAMIN B?1 [Concomitant]
     Active Substance: THIAMINE HYDROCHLORIDE
     Dosage: 100 MG
  7. XGEVA [Concomitant]
     Active Substance: DENOSUMAB
     Dosage: UNK; (120 MG/1.7 VIAL)
  8. ZINC. [Concomitant]
     Active Substance: ZINC
     Dosage: 66 MG
  9. ELDERBERRY [SAMBUCUS NIGRA FRUIT] [Concomitant]
     Dosage: UNK
  10. IBRANCE [Suspect]
     Active Substance: PALBOCICLIB
     Indication: BREAST CANCER FEMALE
     Dosage: 125 MG, CYCLIC (QDX 21 DAYS)
     Dates: start: 20201104
  11. HYDROCODONE/ACETAMINOPHEN [Concomitant]
     Active Substance: ACETAMINOPHEN\HYDROCODONE
     Dosage: UNK

REACTIONS (9)
  - Haemorrhage [Unknown]
  - Platelet count decreased [Unknown]
  - Fatigue [Not Recovered/Not Resolved]
  - White blood cell count decreased [Unknown]
  - Night sweats [Unknown]
  - Rash [Unknown]
  - Pruritus [Unknown]
  - Skin abrasion [Unknown]
  - Nausea [Not Recovered/Not Resolved]
